FAERS Safety Report 5759671-X (Version None)
Quarter: 2008Q2

REPORT INFORMATION
  Report Type: 
  Country: None (occurrence: None)
  Receive Date: 20080605
  Receipt Date: 20080526
  Transmission Date: 20081010
  Serious: Yes (Congenital Anomaly)
  Sender: FDA-Public Use
  Company Number: GB-ABBOTT-08P-167-0441224-00

PATIENT
  Sex: Male

DRUGS (1)
  1. VALPROATE SODIUM [Suspect]
     Indication: DRUG EXPOSURE DURING PREGNANCY
     Route: 064

REACTIONS (27)
  - ABNORMAL BEHAVIOUR [None]
  - ACTIVITIES OF DAILY LIVING IMPAIRED [None]
  - AGGRESSION [None]
  - ASTIGMATISM [None]
  - ATTENTION-SEEKING BEHAVIOUR [None]
  - COGNITIVE DISORDER [None]
  - CONGENITAL NOSE MALFORMATION [None]
  - DEVELOPMENTAL DELAY [None]
  - DISTRACTIBILITY [None]
  - DISTURBANCE IN ATTENTION [None]
  - DRUG EXPOSURE DURING PREGNANCY [None]
  - DYSMORPHISM [None]
  - FEAR [None]
  - FEBRILE CONVULSION [None]
  - FOETAL ANTICONVULSANT SYNDROME [None]
  - FOOT DEFORMITY [None]
  - HYPERACUSIS [None]
  - LEARNING DISABILITY [None]
  - LIP DISORDER [None]
  - MALOCCLUSION [None]
  - MEMORY IMPAIRMENT [None]
  - NEGATIVISM [None]
  - OBSESSIVE THOUGHTS [None]
  - PARANOIA [None]
  - PSYCHIATRIC SYMPTOM [None]
  - READING DISORDER [None]
  - SLEEP DISORDER [None]
